FAERS Safety Report 9973755 (Version 1)
Quarter: 2014Q1

REPORT INFORMATION
  Report Type: Spontaneous
  Country: US (occurrence: US)
  Receive Date: 20140306
  Receipt Date: 20140306
  Transmission Date: 20141002
  Serious: Yes (Other)
  Sender: FDA-Public Use
  Company Number: US-GILEAD-2012-0065129

PATIENT
  Sex: Female

DRUGS (2)
  1. VIREAD [Suspect]
     Indication: PRODUCT USED FOR UNKNOWN INDICATION
     Dosage: UNK
  2. VIREAD [Suspect]
     Dosage: UNK
     Dates: start: 201207

REACTIONS (2)
  - No therapeutic response [Unknown]
  - Pregnancy [Unknown]
